FAERS Safety Report 5947747-3 (Version None)
Quarter: 2008Q4

REPORT INFORMATION
  Report Type: 
  Country: None (occurrence: None)
  Receive Date: 20081110
  Receipt Date: 20081110
  Transmission Date: 20090506
  Serious: Yes (Disabling, Other)
  Sender: FDA-Public Use
  Company Number: None

PATIENT
  Sex: Female
  Weight: 113.3993 kg

DRUGS (1)
  1. PROAIR HFA [Suspect]
     Indication: ASTHMA
     Dosage: 2 PUFFS 4 TIMES A DAY INHAL, ONE DAY TRIED TWICE
     Route: 055
     Dates: start: 20081030, end: 20081030

REACTIONS (7)
  - BLISTER [None]
  - COUGH [None]
  - DIZZINESS [None]
  - PRESYNCOPE [None]
  - PRODUCT QUALITY ISSUE [None]
  - THERMAL BURN [None]
  - THROAT IRRITATION [None]
